FAERS Safety Report 23071136 (Version 2)
Quarter: 2023Q4

REPORT INFORMATION
  Report Type: Spontaneous
  Country: JP (occurrence: JP)
  Receive Date: 20231016
  Receipt Date: 20231222
  Transmission Date: 20240109
  Serious: Yes (Hospitalization, Other)
  Sender: FDA-Public Use
  Company Number: JP-NEUROCRINE BIOSCIENCES INC.-2023NBI08761

PATIENT
  Age: 64 Year
  Sex: Male

DRUGS (9)
  1. VALBENAZINE [Suspect]
     Active Substance: VALBENAZINE
     Indication: Product used for unknown indication
     Dosage: 40 MILLIGRAM
     Route: 048
     Dates: end: 20231030
  2. VALBENAZINE [Suspect]
     Active Substance: VALBENAZINE
     Dosage: 80 MILLIGRAM, UNK
     Route: 048
     Dates: start: 202307
  3. VALBENAZINE [Suspect]
     Active Substance: VALBENAZINE
     Dosage: 40 MILLIGRAM, UNK
     Route: 048
     Dates: start: 20230620
  4. CHLORPROMAZINE HYDROCHLORIDE [Suspect]
     Active Substance: CHLORPROMAZINE HYDROCHLORIDE
     Indication: Product used for unknown indication
     Route: 065
  5. QUETIAPINE FUMARATE [Concomitant]
     Active Substance: QUETIAPINE FUMARATE
     Dosage: UNK
     Dates: start: 20220215, end: 20230930
  6. TRAZODONE HYDROCHLORIDE [Concomitant]
     Active Substance: TRAZODONE HYDROCHLORIDE
  7. FLUNITRAZEPAM [Concomitant]
     Active Substance: FLUNITRAZEPAM
  8. DAYVIGO [Concomitant]
     Active Substance: LEMBOREXANT
  9. MAGNESIUM OXIDE [Concomitant]
     Active Substance: MAGNESIUM OXIDE

REACTIONS (5)
  - Blood creatine phosphokinase increased [Recovered/Resolved]
  - Dehydration [Recovered/Resolved]
  - Mobility decreased [Recovered/Resolved]
  - Tardive dyskinesia [Unknown]
  - Malaise [Recovered/Resolved]

NARRATIVE: CASE EVENT DATE: 20230925
